FAERS Safety Report 8254945-5 (Version None)
Quarter: 2012Q2

REPORT INFORMATION
  Report Type: 
  Country: None (occurrence: None)
  Receive Date: 20120403
  Receipt Date: 20120330
  Transmission Date: 20120825
  Serious: No
  Sender: FDA-Public Use
  Company Number: US-PFIZER INC-2012081793

PATIENT
  Sex: Female
  Weight: 90.703 kg

DRUGS (3)
  1. SERTRALINE HYDROCHLORIDE [Suspect]
     Indication: POST-TRAUMATIC STRESS DISORDER
     Dosage: UNK
  2. TEMAZEPAM [Concomitant]
     Indication: SLEEP DISORDER
     Dosage: 60 MG, DAILY
  3. SERTRALINE HYDROCHLORIDE [Suspect]
     Dosage: 200 MG, DAILY
     Dates: end: 20120301

REACTIONS (12)
  - BODY TEMPERATURE FLUCTUATION [None]
  - NIGHTMARE [None]
  - FORMICATION [None]
  - CHILLS [None]
  - VITAMIN B COMPLEX DEFICIENCY [None]
  - BINGE EATING [None]
  - ANAEMIA [None]
  - NOCTURNAL FEAR [None]
  - HYPERHIDROSIS [None]
  - CRYING [None]
  - DIZZINESS [None]
  - ABDOMINAL PAIN UPPER [None]
